FAERS Safety Report 17261309 (Version 2)
Quarter: 2021Q2

REPORT INFORMATION
  Report Type: Spontaneous
  Country: FR (occurrence: FR)
  Receive Date: 20200113
  Receipt Date: 20210528
  Transmission Date: 20210716
  Serious: Yes (Death, Life-Threatening, Other)
  Sender: FDA-Public Use
  Company Number: FR-AMGEN-FRASP2020002790

PATIENT

DRUGS (2)
  1. INOTUZUMAB [Concomitant]
     Active Substance: INOTUZUMAB OZOGAMICIN
     Dosage: UNK
  2. BLINATUMOMAB [Suspect]
     Active Substance: BLINATUMOMAB
     Indication: PRECURSOR B-LYMPHOBLASTIC LYMPHOMA RECURRENT
     Dosage: UNK
     Route: 065

REACTIONS (12)
  - Autonomic nervous system imbalance [Not Recovered/Not Resolved]
  - Death [Fatal]
  - Acute lymphocytic leukaemia recurrent [Unknown]
  - Cerebral toxoplasmosis [Unknown]
  - Neutropenia [Unknown]
  - Cytokine release syndrome [Fatal]
  - Encephalopathy [Fatal]
  - Memory impairment [Not Recovered/Not Resolved]
  - Thrombocytopenia [Unknown]
  - Human herpesvirus 6 encephalitis [Unknown]
  - Headache [Recovered/Resolved]
  - Seizure [Recovered/Resolved]
